FAERS Safety Report 16114498 (Version 1)
Quarter: 2019Q1

REPORT INFORMATION
  Report Type: Spontaneous
  Country: GB (occurrence: GB)
  Receive Date: 20190325
  Receipt Date: 20190325
  Transmission Date: 20190418
  Serious: Yes (Other)
  Sender: FDA-Public Use
  Company Number: GB-JNJFOC-20190332169

PATIENT
  Age: 69 Year
  Sex: Male
  Weight: 106 kg

DRUGS (14)
  1. MONOMIL [Concomitant]
     Active Substance: ISOSORBIDE MONONITRATE
     Route: 065
     Dates: start: 20180903
  2. OMEPRAZOLE. [Concomitant]
     Active Substance: OMEPRAZOLE
     Route: 065
     Dates: start: 20181218
  3. XARELTO [Suspect]
     Active Substance: RIVAROXABAN
     Indication: PRODUCT USED FOR UNKNOWN INDICATION
     Route: 048
  4. CLOPIDOGREL [Concomitant]
     Active Substance: CLOPIDOGREL BISULFATE
     Route: 065
     Dates: start: 20190226
  5. NAPROXEN. [Concomitant]
     Active Substance: NAPROXEN
     Dosage: ONE TWO OR THREE TIMES/DAY AFTER FOOD
     Route: 065
     Dates: start: 20181211, end: 20190204
  6. PROCHLORPERAZINE. [Concomitant]
     Active Substance: PROCHLORPERAZINE
     Dosage: 1 DF THREE TIMES A DAY AS NECESSARY
     Route: 065
     Dates: start: 20180903
  7. XARELTO [Suspect]
     Active Substance: RIVAROXABAN
     Indication: PRODUCT USED FOR UNKNOWN INDICATION
     Route: 048
  8. IRBESARTAN. [Concomitant]
     Active Substance: IRBESARTAN
     Route: 065
     Dates: start: 20180903
  9. GLYCERYL TRINITRATE [Concomitant]
     Active Substance: NITROGLYCERIN
     Dosage: ONE OR TWO PUFFS UNDER THE TONGUE; AS NECESSARY
     Route: 060
     Dates: start: 20180903
  10. EZETIMIBE. [Concomitant]
     Active Substance: EZETIMIBE
     Route: 065
     Dates: start: 20180903
  11. BISOPROLOL [Concomitant]
     Active Substance: BISOPROLOL
     Route: 065
     Dates: start: 20180903
  12. TICAGRELOR. [Concomitant]
     Active Substance: TICAGRELOR
     Route: 065
     Dates: start: 20180903, end: 20190226
  13. ACETYLSALICYLIC ACID [Concomitant]
     Active Substance: ASPIRIN
     Route: 065
     Dates: start: 20180903
  14. ALLOPURINOL. [Concomitant]
     Active Substance: ALLOPURINOL
     Indication: GOUT
     Route: 065
     Dates: start: 20180903

REACTIONS (2)
  - Swollen tongue [Recovered/Resolved]
  - Throat irritation [Unknown]

NARRATIVE: CASE EVENT DATE: 20190226
